FAERS Safety Report 8326971-9 (Version None)
Quarter: 2012Q2

REPORT INFORMATION
  Report Type: 
  Country: None (occurrence: None)
  Receive Date: 20120501
  Receipt Date: 20120420
  Transmission Date: 20120825
  Serious: Yes (Other)
  Sender: FDA-Public Use
  Company Number: JP-VERTEX PHARMACEUTICALS INC.-AE-2012-006012

PATIENT
  Age: 67 Year
  Sex: Female

DRUGS (3)
  1. TELAVIC (TELAPREVIR) [Suspect]
     Route: 048
     Dates: start: 20120418, end: 20120420
  2. REBETOL [Concomitant]
     Route: 048
     Dates: start: 20120418, end: 20120420
  3. PEGINTERFERON [Concomitant]
     Route: 051
     Dates: start: 20120418, end: 20120418

REACTIONS (3)
  - RENAL DISORDER [None]
  - HAEMOGLOBIN DECREASED [None]
  - PYREXIA [None]
